FAERS Safety Report 6810423-9 (Version None)
Quarter: 2010Q2

REPORT INFORMATION
  Report Type: 
  Country: None (occurrence: None)
  Receive Date: 20100630
  Receipt Date: 20100622
  Transmission Date: 20101027
  Serious: Yes (Death, Hospitalization)
  Sender: FDA-Public Use
  Company Number: ES-JNJFOC-20100606525

PATIENT
  Age: 87 Year
  Sex: Female

DRUGS (23)
  1. LEVOFLOXACIN [Suspect]
     Indication: PULMONARY TUBERCULOSIS
     Route: 065
  2. LEVOFLOXACIN [Suspect]
     Route: 065
  3. RIFAMPIN [Suspect]
     Indication: PULMONARY TUBERCULOSIS
     Route: 065
  4. RIFAMPIN [Suspect]
     Route: 065
  5. ETHAMBUTOL HYDROCHLORIDE [Suspect]
     Indication: PULMONARY TUBERCULOSIS
     Route: 048
  6. ETHAMBUTOL HYDROCHLORIDE [Suspect]
     Route: 048
  7. ETHAMBUTOL HYDROCHLORIDE [Suspect]
     Route: 048
  8. ISONIAZID [Suspect]
     Indication: PULMONARY TUBERCULOSIS
     Route: 048
  9. PYRAZINAMIDE [Suspect]
     Indication: PULMONARY TUBERCULOSIS
     Route: 048
  10. VITAMIN B6 [Suspect]
     Indication: PULMONARY TUBERCULOSIS
     Route: 048
  11. IPRATROPIUM BROMIDE [Suspect]
     Indication: DRUG USE FOR UNKNOWN INDICATION
     Route: 065
  12. PIPERACILLIN AND TAZOBACTAM [Suspect]
     Indication: PULMONARY TUBERCULOSIS
     Route: 065
  13. AUGMENTIN '875' [Suspect]
     Indication: PULMONARY TUBERCULOSIS
     Route: 065
  14. FUROSEMIDE [Concomitant]
     Route: 065
  15. PANTOPRAZOLE [Concomitant]
     Indication: DRUG USE FOR UNKNOWN INDICATION
     Route: 065
  16. HIBOR [Concomitant]
     Route: 065
  17. CEFEPIME [Concomitant]
     Indication: DRUG USE FOR UNKNOWN INDICATION
     Route: 065
  18. ACETAMINOPHEN [Concomitant]
     Indication: DRUG USE FOR UNKNOWN INDICATION
     Route: 065
  19. BEMIPARIN [Concomitant]
     Indication: DRUG USE FOR UNKNOWN INDICATION
     Route: 065
  20. METHYLPREDNISOLONE [Concomitant]
     Indication: DRUG USE FOR UNKNOWN INDICATION
     Route: 065
  21. METOCLOPRAMIDE [Concomitant]
     Indication: DRUG USE FOR UNKNOWN INDICATION
     Route: 065
  22. LACTULOSE [Concomitant]
     Indication: DRUG USE FOR UNKNOWN INDICATION
     Route: 065
  23. UNKNOWN MEDICATION [Concomitant]
     Indication: DRUG USE FOR UNKNOWN INDICATION
     Route: 065

REACTIONS (9)
  - CLOSTRIDIUM DIFFICILE COLITIS [None]
  - DIASTOLIC DYSFUNCTION [None]
  - ENCEPHALOPATHY [None]
  - HEPATITIS [None]
  - PLEURAL FIBROSIS [None]
  - PULMONARY TUBERCULOSIS [None]
  - RESPIRATORY FAILURE [None]
  - RESPIRATORY TRACT INFECTION [None]
  - SINUS TACHYCARDIA [None]
